FAERS Safety Report 24634637 (Version 1)
Quarter: 2024Q4

REPORT INFORMATION
  Report Type: Spontaneous
  Country: US (occurrence: US)
  Receive Date: 20241119
  Receipt Date: 20241119
  Transmission Date: 20250115
  Serious: No
  Sender: STALLERGENES
  Company Number: US-STALCOR-2024-AER-02112

PATIENT
  Age: 16 Year
  Sex: Male
  Weight: 51.26 kg

DRUGS (2)
  1. PALFORZIA [Suspect]
     Active Substance: PEANUT
     Indication: Food allergy
     Dosage: DOSE THAT CAUSED REACTION
     Route: 048
     Dates: start: 20240916, end: 20240916
  2. PALFORZIA [Suspect]
     Active Substance: PEANUT
     Dosage: INITIAL OFFICE DOSE
     Route: 048

REACTIONS (2)
  - Oropharyngeal pain [Not Recovered/Not Resolved]
  - Nasal congestion [Not Recovered/Not Resolved]

NARRATIVE: CASE EVENT DATE: 20240916
